FAERS Safety Report 24923992 (Version 2)
Quarter: 2025Q1

REPORT INFORMATION
  Report Type: Spontaneous
  Country: FR (occurrence: FR)
  Receive Date: 20250204
  Receipt Date: 20250217
  Transmission Date: 20250409
  Serious: Yes (Hospitalization)
  Sender: UCB
  Company Number: None

PATIENT
  Age: 3 Year
  Sex: Male
  Weight: 18 kg

DRUGS (1)
  1. KEPPRA [Suspect]
     Active Substance: LEVETIRACETAM
     Indication: Epilepsy
     Dosage: 540 MILLIGRAM, ONCE DAILY (QD)
     Route: 048
     Dates: start: 20241220, end: 20250117

REACTIONS (4)
  - Behaviour disorder [Recovered/Resolved]
  - Urinary incontinence [Recovered/Resolved]
  - Coordination abnormal [Recovered/Resolved]
  - Muscular weakness [Recovered/Resolved]

NARRATIVE: CASE EVENT DATE: 20241221
